FAERS Safety Report 16534508 (Version 1)
Quarter: 2019Q3

REPORT INFORMATION
  Report Type: Spontaneous
  Country: FI (occurrence: FI)
  Receive Date: 20190705
  Receipt Date: 20190705
  Transmission Date: 20191004
  Serious: Yes (Life-Threatening)
  Sender: FDA-Public Use
  Company Number: FI-SA-2019SA179215

PATIENT
  Age: 62 Year
  Sex: Female

DRUGS (16)
  1. DEXAMETHASONE. [Suspect]
     Active Substance: DEXAMETHASONE
     Dosage: 15 MG, QD
     Route: 048
     Dates: start: 20190315
  2. MIRTAZAPIN ACTAVIS [Concomitant]
     Active Substance: MIRTAZAPINE
     Dosage: 7.5,MG,DAILY
  3. TRASTUZUMAB. [Suspect]
     Active Substance: TRASTUZUMAB
     Indication: BREAST CANCER
     Dosage: UNK UNK, UNK
     Route: 058
     Dates: start: 20190315, end: 20190315
  4. DOCETAXEL. [Suspect]
     Active Substance: DOCETAXEL
     Indication: BREAST CANCER
     Dosage: UNK UNK, UNK
     Route: 042
     Dates: start: 20190315, end: 20190315
  5. PELGRAZ [Suspect]
     Active Substance: PEGFILGRASTIM
     Indication: BREAST CANCER
     Dosage: UNK UNK, UNK
     Route: 058
     Dates: start: 20190315, end: 20190315
  6. PREGABALIN ORION [Concomitant]
     Dosage: 300 MG, QD
  7. PRIMPERAN [Concomitant]
     Active Substance: METOCLOPRAMIDE HYDROCHLORIDE
  8. THYROXIN [Concomitant]
     Active Substance: LEVOTHYROXINE
     Dosage: 100 UG, QD
  9. AKYNZEO [Concomitant]
     Active Substance: NETUPITANT\PALONOSETRON HYDROCHLORIDE
  10. DALACIN [CLINDAMYCIN PHOSPHATE] [Concomitant]
  11. SEPRAM [Concomitant]
     Active Substance: CITALOPRAM HYDROBROMIDE
     Dosage: 40 MG, QD
  12. BURANA [Concomitant]
     Active Substance: IBUPROFEN
  13. SOMAC [Concomitant]
     Active Substance: PANTOPRAZOLE SODIUM
  14. OXYCONTIN [Concomitant]
     Active Substance: OXYCODONE HYDROCHLORIDE
     Dosage: 20 MG, QD
  15. DIAPAM [DIAZEPAM] [Concomitant]
  16. OXYNORM [Concomitant]
     Active Substance: OXYCODONE HYDROCHLORIDE

REACTIONS (12)
  - Inflammation [Not Recovered/Not Resolved]
  - Bone marrow failure [Not Recovered/Not Resolved]
  - Diarrhoea [Not Recovered/Not Resolved]
  - Acute respiratory distress syndrome [Not Recovered/Not Resolved]
  - General physical health deterioration [Not Recovered/Not Resolved]
  - Lung infiltration [Not Recovered/Not Resolved]
  - Depressed level of consciousness [Not Recovered/Not Resolved]
  - Respiratory failure [Not Recovered/Not Resolved]
  - Cardiac failure [Not Recovered/Not Resolved]
  - Stomatitis [Not Recovered/Not Resolved]
  - Blood pressure decreased [Not Recovered/Not Resolved]
  - Toxicity to various agents [Not Recovered/Not Resolved]

NARRATIVE: CASE EVENT DATE: 201904
